FAERS Safety Report 9063338 (Version 2)
Quarter: 2013Q1

REPORT INFORMATION
  Report Type: Spontaneous
  Country: GB (occurrence: GB)
  Receive Date: 20130213
  Receipt Date: 20130219
  Transmission Date: 20140127
  Serious: No
  Sender: FDA-Public Use
  Company Number: GB-JNJFOC-20130205037

PATIENT
  Age: 61 Year
  Sex: Male

DRUGS (1)
  1. NICORETTE QUICKMIST [Suspect]
     Indication: PRODUCT USED FOR UNKNOWN INDICATION
     Route: 048
     Dates: start: 20130123, end: 20130123

REACTIONS (1)
  - Asthma [Recovered/Resolved]
